FAERS Safety Report 8265314-6 (Version None)
Quarter: 2012Q2

REPORT INFORMATION
  Report Type: 
  Country: None (occurrence: None)
  Receive Date: 20120406
  Receipt Date: 20120402
  Transmission Date: 20120825
  Serious: Yes (Other)
  Sender: FDA-Public Use
  Company Number: PR-ABBOTT-12P-131-0914361-00

PATIENT
  Sex: Female
  Weight: 81.72 kg

DRUGS (9)
  1. ALLEGRA-D 12 HOUR [Concomitant]
     Indication: SINUSITIS
     Route: 048
     Dates: start: 20110101
  2. PLAQUENIL [Concomitant]
     Indication: RHEUMATOID ARTHRITIS
     Route: 048
     Dates: start: 20101001
  3. NEURONTIN [Concomitant]
     Indication: NEUROPATHY PERIPHERAL
     Route: 048
     Dates: start: 20070101
  4. XANTAC [Concomitant]
     Indication: GASTRIC DISORDER
     Route: 048
  5. WELLBUTRIN [Concomitant]
     Indication: DEPRESSION
     Route: 048
     Dates: start: 20100101
  6. NEURONTIN [Concomitant]
     Route: 048
     Dates: start: 20070101
  7. HUMIRA [Suspect]
     Indication: RHEUMATOID ARTHRITIS
     Route: 058
     Dates: start: 20101001, end: 20120308
  8. HUMIRA [Suspect]
     Route: 058
     Dates: start: 20120322
  9. METHOTREXATE [Concomitant]
     Indication: RHEUMATOID ARTHRITIS
     Dosage: 5MG FOR 3 DAYS; 2 TABS ON SUNDAY, SATURDAYS AND THURSDAYS
     Route: 048
     Dates: start: 20101001

REACTIONS (4)
  - UNEVALUABLE EVENT [None]
  - OROPHARYNGEAL PAIN [None]
  - CHEST PAIN [None]
  - PYREXIA [None]
